FAERS Safety Report 24022768 (Version 1)
Quarter: 2024Q2

REPORT INFORMATION
  Report Type: Spontaneous
  Country: GB (occurrence: GB)
  Receive Date: 20240627
  Receipt Date: 20240627
  Transmission Date: 20240715
  Serious: No
  Sender: FDA-Public Use
  Company Number: GB-ROCHE-3545248

PATIENT
  Sex: Female

DRUGS (1)
  1. VABYSMO [Suspect]
     Active Substance: FARICIMAB\FARICIMAB-SVOA
     Indication: Macular degeneration
     Dosage: ON AN UNKNOWN DATE IN /FEB/2024, TOOK THE MOST RECENT DOSE OF FARICIMAB.?ON 21/MAR/2024, TOOK THE MO
     Route: 065
     Dates: start: 202401

REACTIONS (1)
  - Visual impairment [Not Recovered/Not Resolved]
